FAERS Safety Report 7889150-5 (Version None)
Quarter: 2011Q4

REPORT INFORMATION
  Report Type: 
  Country: None (occurrence: None)
  Receive Date: 20111103
  Receipt Date: 20111028
  Transmission Date: 20120403
  Serious: Yes (Other)
  Sender: FDA-Public Use
  Company Number: CA-PFIZER INC-2011265646

PATIENT
  Age: 79 Year
  Sex: Female

DRUGS (2)
  1. SYNTHROID [Concomitant]
     Indication: THYROID DISORDER
     Dosage: UNK
  2. XALATAN [Suspect]
     Indication: GLAUCOMA
     Dosage: 1 DROP IN BOTH EYES AT BEDTIME
     Route: 047

REACTIONS (3)
  - CATARACT OPERATION [None]
  - DRY EYE [None]
  - SKIN DISCOLOURATION [None]
